FAERS Safety Report 8936547 (Version 1)
Quarter: 2012Q4

REPORT INFORMATION
  Report Type: 
  Country: GB (occurrence: GB)
  Receive Date: 20121130
  Receipt Date: 20121130
  Transmission Date: 20130627
  Serious: Yes (Death, Other)
  Sender: FDA-Public Use
  Company Number: GB-PFIZER INC-2012297364

PATIENT
  Age: 68 Year
  Sex: Female

DRUGS (1)
  1. TORISEL [Suspect]
     Indication: MANTLE CELL LYMPHOMA
     Dosage: UNK
     Dates: start: 201202

REACTIONS (5)
  - Disease progression [Fatal]
  - Mantle cell lymphoma [Fatal]
  - Lower respiratory tract infection [Unknown]
  - Lymphocytosis [Unknown]
  - White blood cell count increased [Unknown]
